FAERS Safety Report 6960216-7 (Version None)
Quarter: 2010Q3

REPORT INFORMATION
  Report Type: 
  Country: None (occurrence: None)
  Receive Date: 20100901
  Receipt Date: 20100817
  Transmission Date: 20110219
  Serious: Yes (Other)
  Sender: FDA-Public Use
  Company Number: US-SANOFI-AVENTIS-2010SA039157

PATIENT
  Age: 82 Year
  Sex: Female
  Weight: 117.02 kg

DRUGS (18)
  1. LANTUS [Suspect]
     Dosage: DOSE:30 UNIT(S)
     Route: 058
     Dates: start: 20100101
  2. ASPIRIN [Concomitant]
  3. URINARY ANTISPASMODICS [Concomitant]
  4. PLAVIX [Concomitant]
  5. LASIX [Concomitant]
  6. ISOSORBIDE [Concomitant]
  7. FEMARA [Concomitant]
  8. ALDOMET [Concomitant]
  9. METOPROLOL TARTRATE [Concomitant]
  10. NIACIN [Concomitant]
  11. ACTOS [Concomitant]
  12. ZOCOR [Concomitant]
  13. ALDACTONE [Concomitant]
  14. ALDORIL 15 [Concomitant]
  15. ULTRAN [Concomitant]
  16. POTASSIUM [Concomitant]
  17. VITAMIN D [Concomitant]
  18. GLYBURIDE [Concomitant]

REACTIONS (2)
  - FALL [None]
  - PATELLA FRACTURE [None]
